FAERS Safety Report 12713103 (Version 4)
Quarter: 2017Q2

REPORT INFORMATION
  Report Type: Report from Study
  Country: None (occurrence: US)
  Receive Date: 20160902
  Receipt Date: 20170412
  Transmission Date: 20170830
  Serious: Yes (Other)
  Sender: FDA-Public Use
  Company Number: US-ABBVIE-16K-163-1711382-00

PATIENT
  Age: 74 Year
  Sex: Female

DRUGS (2)
  1. HUMIRA [Suspect]
     Active Substance: ADALIMUMAB
     Indication: PSORIATIC ARTHROPATHY
     Route: 058
     Dates: start: 201507, end: 20160720
  2. METHOTREXATE. [Suspect]
     Active Substance: METHOTREXATE
     Indication: PRODUCT USED FOR UNKNOWN INDICATION
     Route: 065
     Dates: end: 201607

REACTIONS (8)
  - Therapeutic response shortened [Unknown]
  - Respiratory rate increased [Unknown]
  - Pulmonary thrombosis [Unknown]
  - Back pain [Not Recovered/Not Resolved]
  - Viral upper respiratory tract infection [Unknown]
  - Arthralgia [Unknown]
  - Pulmonary embolism [Recovering/Resolving]
  - Sinusitis [Unknown]

NARRATIVE: CASE EVENT DATE: 201607
